FAERS Safety Report 25850666 (Version 1)
Quarter: 2025Q3

REPORT INFORMATION
  Report Type: Spontaneous
  Country: CA (occurrence: CA)
  Receive Date: 20250926
  Receipt Date: 20250926
  Transmission Date: 20251021
  Serious: Yes (Other)
  Sender: ROCHE
  Company Number: CA-ROCHE-10000390742

PATIENT
  Sex: Female

DRUGS (2)
  1. OCRELIZUMAB [Suspect]
     Active Substance: OCRELIZUMAB
     Indication: Relapsing-remitting multiple sclerosis
     Route: 042
  2. AMOXICILLIN SODIUM [Concomitant]
     Active Substance: AMOXICILLIN SODIUM
     Route: 048

REACTIONS (4)
  - Breast disorder [Not Recovered/Not Resolved]
  - Escherichia infection [Not Recovered/Not Resolved]
  - Mastitis [Not Recovered/Not Resolved]
  - Tissue expansion procedure [Not Recovered/Not Resolved]
